FAERS Safety Report 12688065 (Version 2)
Quarter: 2016Q4

REPORT INFORMATION
  Report Type: Spontaneous
  Country: US (occurrence: US)
  Receive Date: 20160825
  Receipt Date: 20161208
  Transmission Date: 20170207
  Serious: Yes (Other)
  Sender: FDA-Public Use
  Company Number: US-BAYER-2016-164158

PATIENT
  Age: 51 Year
  Sex: Female
  Weight: 152.38 kg

DRUGS (10)
  1. SIMVASTIN [Concomitant]
     Active Substance: SIMVASTATIN
     Indication: BLOOD CHOLESTEROL INCREASED
     Dosage: 10 MG, QD
  2. KETOROLAC [Concomitant]
     Active Substance: KETOROLAC\KETOROLAC TROMETHAMINE
     Indication: ANTIINFLAMMATORY THERAPY
     Dosage: UNK
     Dates: start: 2013
  3. ADVIL [Concomitant]
     Active Substance: IBUPROFEN
     Indication: PAIN
     Dosage: UNK
     Dates: start: 2016
  4. MULTAQ [Concomitant]
     Active Substance: DRONEDARONE
     Indication: HEART RATE ABNORMAL
     Dosage: 400 MG, BID
  5. VITAMINS NOS [Concomitant]
     Active Substance: VITAMINS
  6. VITAMIN B12 [Concomitant]
     Active Substance: CYANOCOBALAMIN
     Indication: SUPPLEMENTATION THERAPY
  7. CELEBREX [Concomitant]
     Active Substance: CELECOXIB
     Indication: PAIN MANAGEMENT
     Dosage: 200 MG, QD
  8. WARFARIN [Concomitant]
     Active Substance: WARFARIN
     Indication: ANTICOAGULANT THERAPY
     Dosage: UNK
     Dates: start: 2009
  9. AVELOX [Suspect]
     Active Substance: MOXIFLOXACIN HYDROCHLORIDE
     Dosage: UNK
  10. MACROBID [Concomitant]
     Active Substance: NITROFURANTOIN\NITROFURANTOIN MONOHYDRATE
     Indication: URINARY TRACT INFECTION

REACTIONS (13)
  - Neuropathy peripheral [Not Recovered/Not Resolved]
  - Joint effusion [None]
  - Rash erythematous [None]
  - Carpal tunnel syndrome [None]
  - Peripheral sensory neuropathy [None]
  - Synovial cyst [None]
  - Dyspnoea exertional [None]
  - Spinal osteoarthritis [None]
  - Sciatic nerve neuropathy [None]
  - Pain [None]
  - Osteoarthritis [None]
  - Oedema peripheral [None]
  - Sinusitis [None]

NARRATIVE: CASE EVENT DATE: 20100519
